FAERS Safety Report 5546369-6 (Version None)
Quarter: 2007Q4

REPORT INFORMATION
  Report Type: 
  Country: None (occurrence: None)
  Receive Date: 20071206
  Receipt Date: 20071206
  Transmission Date: 20080405
  Serious: Yes (Hospitalization)
  Sender: FDA-Public Use
  Company Number: None

PATIENT
  Sex: Female
  Weight: 52 kg

DRUGS (6)
  1. AVASTIN [Suspect]
     Indication: GLIOBLASTOMA
     Dosage: 10MG/KG QOW IV
     Route: 042
  2. TEMODAR [Suspect]
     Indication: GLIOBLASTOMA
     Dosage: 75MG/M2 DAILY PO
     Route: 048
  3. DILANTIN [Concomitant]
  4. DECADRON [Concomitant]
  5. LORTAB [Concomitant]
  6. XANAX [Concomitant]

REACTIONS (1)
  - NO ADVERSE EVENT [None]
